FAERS Safety Report 4404497-2 (Version None)
Quarter: 2004Q3

REPORT INFORMATION
  Report Type: 
  Country: None (occurrence: None)
  Receive Date: 20040720
  Receipt Date: 20040709
  Transmission Date: 20050211
  Serious: Yes (Death, Other)
  Sender: FDA-Public Use
  Company Number: 2004036241

PATIENT
  Age: 81 Year
  Sex: Female
  Weight: 34 kg

DRUGS (2)
  1. DIFLUCAN [Suspect]
     Indication: FUNGAEMIA
     Dosage: 400 MG (200 MG, 2 IN 1 D), INTRAVENOUS
     Route: 042
     Dates: start: 20040514, end: 20040516
  2. TIENAM (CILASTATIN, IMIPENEM) [Suspect]
     Indication: SEPSIS
     Dosage: 1 GRAM (0.5 GRAM, 2 IN 1 D), INTRAVENOUS
     Route: 042
     Dates: start: 20040319, end: 20040517

REACTIONS (5)
  - CANDIDURIA [None]
  - CATHETER RELATED INFECTION [None]
  - CONVULSION [None]
  - SEPSIS [None]
  - SYSTEMIC CANDIDA [None]
